FAERS Safety Report 7640862-8 (Version None)
Quarter: 2011Q3

REPORT INFORMATION
  Report Type: 
  Country: None (occurrence: None)
  Receive Date: 20110727
  Receipt Date: 20110727
  Transmission Date: 20111222
  Serious: Yes (Disabling)
  Sender: FDA-Public Use
  Company Number: None

PATIENT
  Sex: Male
  Weight: 83.4619 kg

DRUGS (1)
  1. PRADAXA [Suspect]
     Dosage: 150 MG BID PO
     Route: 048
     Dates: start: 20110127

REACTIONS (2)
  - PERICARDIAL EFFUSION [None]
  - CEREBROVASCULAR ACCIDENT [None]
